FAERS Safety Report 18623132 (Version 1)
Quarter: 2020Q4

REPORT INFORMATION
  Report Type: Spontaneous
  Country: GR (occurrence: GR)
  Receive Date: 20201216
  Receipt Date: 20201216
  Transmission Date: 20210114
  Serious: Yes (Other)
  Sender: FDA-Public Use
  Company Number: GR-009507513-2012GRC005717

PATIENT
  Age: 65 Year
  Sex: Female

DRUGS (2)
  1. ALENDRONATE SODIUM. [Suspect]
     Active Substance: ALENDRONATE SODIUM
     Indication: OSTEOPOROSIS PROPHYLAXIS
     Dosage: UNK (UNK UNK, UNKNOWN); TOOK ANTIOSTEOPORTIC THERAPY FOR 12 YEARS, INITIALLY WITH RISEDRONATE AND SE
     Route: 048
  2. RISEDRONATE SODIUM. [Suspect]
     Active Substance: RISEDRONATE SODIUM
     Indication: OSTEOPOROSIS PROPHYLAXIS
     Dosage: UNK (UNK UNK, UNKNOWN) (TOOK ANTIOSTEOPORTIC THERAPY FOR 12 YEARS, INITIALLY WITH RISEDRONATE AND SE
     Route: 048

REACTIONS (5)
  - Femur fracture [Not Recovered/Not Resolved]
  - Pain in extremity [Recovered/Resolved]
  - Fracture delayed union [Not Recovered/Not Resolved]
  - Atypical femur fracture [Not Recovered/Not Resolved]
  - Pain in extremity [Recovering/Resolving]
